FAERS Safety Report 7388843-6 (Version None)
Quarter: 2011Q2

REPORT INFORMATION
  Report Type: 
  Country: None (occurrence: None)
  Receive Date: 20110401
  Receipt Date: 20110325
  Transmission Date: 20111010
  Serious: Yes (Other)
  Sender: FDA-Public Use
  Company Number: US-ABBOTT-11P-163-0714654-00

PATIENT
  Sex: Female

DRUGS (3)
  1. LUPRON DEPOT [Suspect]
     Indication: ENDOMETRIOSIS
     Dates: start: 20100601, end: 20100801
  2. UNKNOWN PAIN MEDICATION [Concomitant]
     Indication: PAIN
  3. UNKNOWN ANTIEMETIC [Concomitant]
     Indication: NAUSEA

REACTIONS (12)
  - INFLUENZA LIKE ILLNESS [None]
  - EMOTIONAL DISTRESS [None]
  - APHAGIA [None]
  - DISTURBANCE IN ATTENTION [None]
  - FATIGUE [None]
  - MYALGIA [None]
  - PAIN IN JAW [None]
  - ABDOMINAL PAIN [None]
  - BONE PAIN [None]
  - FEELING ABNORMAL [None]
  - HEADACHE [None]
  - HOT FLUSH [None]
